FAERS Safety Report 4779204-4 (Version None)
Quarter: 2005Q3

REPORT INFORMATION
  Report Type: 
  Country: None (occurrence: None)
  Receive Date: 20050923
  Receipt Date: 20050915
  Transmission Date: 20060218
  Serious: Yes (Death)
  Sender: FDA-Public Use
  Company Number: 163-20785-05090241

PATIENT
  Age: 74 Year
  Sex: Female

DRUGS (2)
  1. THALOMID [Suspect]
     Indication: COLON CANCER
     Dosage: 200 MG, DAILY; ORAL
     Route: 048
     Dates: start: 20050721, end: 20050801
  2. THALOMID [Suspect]
     Indication: MULTIPLE MYELOMA
     Dosage: 200 MG, DAILY; ORAL
     Route: 048
     Dates: start: 20050721, end: 20050801

REACTIONS (2)
  - PNEUMONIA ASPIRATION [None]
  - SEPSIS [None]
